FAERS Safety Report 5501722-1 (Version None)
Quarter: 2007Q4

REPORT INFORMATION
  Report Type: 
  Country: None (occurrence: None)
  Receive Date: 20071026
  Receipt Date: 20071026
  Transmission Date: 20080405
  Serious: Yes (Other)
  Sender: FDA-Public Use
  Company Number: None

PATIENT
  Age: 65 Year
  Sex: Male

DRUGS (7)
  1. KETOCONAZOLE [Suspect]
     Indication: PROSTATE CANCER
     Dosage: 400 MG PO TID
     Route: 048
     Dates: start: 20070111, end: 20070606
  2. CRESTOR [Suspect]
     Indication: HYPERCHOLESTEROLAEMIA
     Dosage: 20 MG PO QD
     Route: 048
     Dates: start: 20070110, end: 20070629
  3. ZANTAC [Concomitant]
  4. CRESTOR [Concomitant]
  5. KETOCONAZOLE [Concomitant]
  6. HYDROCORTIZONE [Concomitant]
  7. DUTASTERIDE [Concomitant]

REACTIONS (5)
  - DRUG INTERACTION [None]
  - HEPATIC NECROSIS [None]
  - HEPATITIS ACUTE [None]
  - HEPATOTOXICITY [None]
  - MYOPATHY [None]
